FAERS Safety Report 11080014 (Version 2)
Quarter: 2015Q2

REPORT INFORMATION
  Report Type: Spontaneous
  Country: NL (occurrence: NL)
  Receive Date: 20150430
  Receipt Date: 20150508
  Transmission Date: 20150821
  Serious: Yes (Death)
  Sender: FDA-Public Use
  Company Number: NL-ABBVIE-15K-114-1382585-00

PATIENT
  Age: 77 Year
  Sex: Female
  Weight: 51 kg

DRUGS (5)
  1. LIPITOR [Concomitant]
     Active Substance: ATORVASTATIN CALCIUM
     Indication: BLOOD CHOLESTEROL INCREASED
     Route: 048
  2. ASCAL [Concomitant]
     Active Substance: CARBASALATE
     Indication: OSTEOPOROSIS PROPHYLAXIS
     Route: 048
  3. ASCAL [Concomitant]
     Active Substance: CARBASALATE
     Indication: CORONARY ARTERY DISEASE
     Route: 048
  4. HUMIRA [Suspect]
     Active Substance: ADALIMUMAB
     Indication: RHEUMATOID ARTHRITIS
     Route: 058
     Dates: start: 2005, end: 2011
  5. OXYCODON [Concomitant]
     Active Substance: OXYCODONE
     Indication: PAIN
     Route: 048

REACTIONS (12)
  - Red blood cell sedimentation rate increased [Not Recovered/Not Resolved]
  - Transferrin saturation decreased [Not Recovered/Not Resolved]
  - White blood cell count increased [Unknown]
  - White blood cell count increased [Recovered/Resolved]
  - Haemoglobin decreased [Not Recovered/Not Resolved]
  - High density lipoprotein decreased [Unknown]
  - Blood alkaline phosphatase increased [Recovered/Resolved]
  - Aspartate aminotransferase increased [Not Recovered/Not Resolved]
  - Colon neoplasm [Fatal]
  - Blood iron decreased [Not Recovered/Not Resolved]
  - Protein total increased [Recovered/Resolved]
  - Abdominal pain [Unknown]

NARRATIVE: CASE EVENT DATE: 20090518
